FAERS Safety Report 14438379 (Version 2)
Quarter: 2018Q2

REPORT INFORMATION
  Report Type: Spontaneous
  Country: US (occurrence: US)
  Receive Date: 20180125
  Receipt Date: 20180626
  Transmission Date: 20180711
  Serious: No
  Sender: FDA-Public Use
  Company Number: US-PFIZER INC-2018031604

PATIENT
  Age: 69 Year
  Sex: Female

DRUGS (1)
  1. EUCRISA [Suspect]
     Active Substance: CRISABOROLE
     Indication: PSORIASIS
     Dosage: UNK, 2X/DAY
     Route: 061
     Dates: start: 20171004, end: 20180131

REACTIONS (4)
  - Drug intolerance [Recovered/Resolved]
  - Product use in unapproved indication [Unknown]
  - Skin irritation [Unknown]
  - Acne [Unknown]
